FAERS Safety Report 8543541-8 (Version None)
Quarter: 2012Q3

REPORT INFORMATION
  Report Type: 
  Country: None (occurrence: None)
  Receive Date: 20120727
  Receipt Date: 20120724
  Transmission Date: 20120928
  Serious: Yes (Death, Other)
  Sender: FDA-Public Use
  Company Number: JP-CELGENEUS-087-21880-11042119

PATIENT
  Sex: Male

DRUGS (5)
  1. JUVELA N [Concomitant]
     Indication: DIABETES MELLITUS
     Dosage: 300 MILLIGRAM
     Route: 048
     Dates: start: 20101110, end: 20101129
  2. REVLIMID [Suspect]
     Dosage: 10 MILLIGRAM
     Route: 048
     Dates: start: 20101110, end: 20101129
  3. MAGMITT [Concomitant]
     Dosage: 2 GRAM
     Route: 048
     Dates: start: 20101110, end: 20101129
  4. METFORMIN HCL [Concomitant]
     Indication: DIABETES MELLITUS
     Dosage: 750 MILLIGRAM
     Route: 048
     Dates: start: 20101110, end: 20101129
  5. AMARYL [Concomitant]
     Indication: DIABETES MELLITUS
     Dosage: 1 MILLIGRAM
     Route: 048
     Dates: start: 20101110, end: 20101129

REACTIONS (2)
  - DEATH [None]
  - THROMBOCYTOPENIA [None]
